FAERS Safety Report 23784329 (Version 1)
Quarter: 2024Q2

REPORT INFORMATION
  Report Type: Spontaneous
  Country: US (occurrence: US)
  Receive Date: 20240425
  Receipt Date: 20240425
  Transmission Date: 20240715
  Serious: No
  Sender: FDA-Public Use
  Company Number: US-Kiniksa Pharmaceuticals Ltd.-2023KPU001158

PATIENT
  Age: 59 Year
  Sex: Female

DRUGS (4)
  1. ARCALYST [Suspect]
     Active Substance: RILONACEPT
     Indication: Pericarditis
     Route: 058
     Dates: start: 20231204
  2. PREDNISONE [Concomitant]
     Active Substance: PREDNISONE
     Indication: Pericarditis
  3. PREDNISONE [Concomitant]
     Active Substance: PREDNISONE
  4. COLCHICINE [Concomitant]
     Active Substance: COLCHICINE
     Indication: Pericarditis

REACTIONS (13)
  - Cough [Recovered/Resolved]
  - Sneezing [Recovered/Resolved]
  - Nasal congestion [Recovered/Resolved]
  - Pyrexia [Recovered/Resolved]
  - Chills [Recovered/Resolved]
  - Pain [Recovered/Resolved]
  - Dysphonia [Recovered/Resolved]
  - Dose calculation error [Recovered/Resolved]
  - Accidental underdose [Recovered/Resolved]
  - Injection site pruritus [Recovered/Resolved]
  - Injection site swelling [Recovered/Resolved]
  - Injection site pain [Recovered/Resolved]
  - Nasal congestion [Recovered/Resolved]

NARRATIVE: CASE EVENT DATE: 20231204
